FAERS Safety Report 10636692 (Version 5)
Quarter: 2015Q4

REPORT INFORMATION
  Report Type: Report from Study
  Country: GB (occurrence: GB)
  Receive Date: 20141208
  Receipt Date: 20151201
  Transmission Date: 20160304
  Serious: Yes (Other)
  Sender: FDA-Public Use
  Company Number: GB-THROMBOGENICS NV-CLI-2014-1013

PATIENT
  Age: 60 Year
  Sex: Female

DRUGS (9)
  1. NOVORAPID [Concomitant]
     Active Substance: INSULIN ASPART
     Indication: DIABETES MELLITUS
     Dosage: UNK
     Route: 058
     Dates: start: 1978
  2. LEVOTHYROXINE. [Concomitant]
     Active Substance: LEVOTHYROXINE
     Indication: HYPOTHYROIDISM
     Dosage: 100 MG, DAILY
     Route: 048
  3. JETREA [Suspect]
     Active Substance: OCRIPLASMIN
     Indication: VITREOUS ADHESIONS
     Dosage: 0.125 MG, ONE TIME DOSE
     Route: 031
     Dates: start: 20140415, end: 20140415
  4. CITALOPRAM [Concomitant]
     Active Substance: CITALOPRAM HYDROBROMIDE
     Indication: MOOD ALTERED
     Dosage: 40 MG, DAILY
     Route: 048
  5. JETREA [Suspect]
     Active Substance: OCRIPLASMIN
     Indication: MACULAR HOLE
  6. ATORVASTATIN [Concomitant]
     Active Substance: ATORVASTATIN
     Indication: DYSLIPIDAEMIA
     Dosage: 40 MG, DAILY
     Route: 048
  7. LETROZOLE. [Concomitant]
     Active Substance: LETROZOLE
     Indication: BREAST CANCER
     Dosage: 2.5 MG, DAILY
     Route: 048
  8. AMLODIPINE [Concomitant]
     Active Substance: AMLODIPINE BESYLATE
     Indication: HYPERTENSION
     Dosage: 5 MG, DAILY
     Route: 048
  9. LOSARTAN. [Concomitant]
     Active Substance: LOSARTAN
     Indication: HYPERTENSION
     Dosage: 50 MG, DAILY
     Route: 048

REACTIONS (15)
  - Photophobia [Unknown]
  - Disease progression [Recovered/Resolved]
  - Retinal oedema [Not Recovered/Not Resolved]
  - Macular hole [Recovered/Resolved]
  - Metamorphopsia [Unknown]
  - Eye pain [Unknown]
  - Vision blurred [Unknown]
  - Visual acuity reduced [Recovered/Resolved]
  - Photopsia [Unknown]
  - Retinal injury [Unknown]
  - Vitreous floaters [Unknown]
  - Pupillary reflex impaired [Unknown]
  - Ocular hyperaemia [Unknown]
  - Retinogram abnormal [Unknown]
  - Chromatopsia [Unknown]

NARRATIVE: CASE EVENT DATE: 20140416
